FAERS Safety Report 4705709-8 (Version None)
Quarter: 2005Q3

REPORT INFORMATION
  Report Type: 
  Country: None (occurrence: None)
  Receive Date: 20050701
  Receipt Date: 20050401
  Transmission Date: 20060218
  Serious: Yes (Hospitalization)
  Sender: FDA-Public Use
  Company Number: JP-MERCK-0504USA00643

PATIENT
  Age: 68 Year
  Sex: Female

DRUGS (5)
  1. PEPCID [Suspect]
     Indication: DUODENAL ULCER
     Route: 048
     Dates: start: 19990928, end: 20031030
  2. RHEUMATREX [Suspect]
     Indication: RHEUMATOID ARTHRITIS
     Route: 048
     Dates: start: 19990803, end: 20031024
  3. MOVER [Suspect]
     Indication: RHEUMATOID ARTHRITIS
     Route: 048
     Dates: start: 20030506, end: 20031030
  4. CLINORIL [Concomitant]
     Route: 048
     Dates: start: 19890328, end: 20031030
  5. KOLANTYL [Concomitant]
     Route: 048
     Dates: start: 20030520, end: 20031030

REACTIONS (2)
  - INTERSTITIAL LUNG DISEASE [None]
  - IRON DEFICIENCY ANAEMIA [None]
